FAERS Safety Report 21176561 (Version 1)
Quarter: 2022Q3

REPORT INFORMATION
  Report Type: Spontaneous
  Country: US (occurrence: US)
  Receive Date: 20220805
  Receipt Date: 20220805
  Transmission Date: 20221026
  Serious: No
  Sender: FDA-Public Use
  Company Number: US-APOTEX-2021AP028722

PATIENT
  Age: 63 Year
  Sex: Male

DRUGS (1)
  1. TEMOZOLOMIDE [Suspect]
     Active Substance: TEMOZOLOMIDE
     Indication: Myxofibrosarcoma
     Dosage: 150 MILLIGRAM/SQ. METER ON DAYS 1-5, WITH 28-DAY
     Route: 065

REACTIONS (1)
  - Adverse drug reaction [Unknown]
